FAERS Safety Report 15801314 (Version 2)
Quarter: 2019Q1

REPORT INFORMATION
  Report Type: Spontaneous
  Country: US (occurrence: US)
  Receive Date: 20190109
  Receipt Date: 20190317
  Transmission Date: 20190417
  Serious: No
  Sender: FDA-Public Use
  Company Number: US-DRREDDYS-USA/USA/18/0102457

PATIENT
  Age: 51 Year
  Sex: Female
  Weight: 104.3 kg

DRUGS (1)
  1. NICOTINE. [Suspect]
     Active Substance: NICOTINE
     Indication: PRODUCT USED FOR UNKNOWN INDICATION
     Dates: start: 20180717

REACTIONS (3)
  - Product adhesion issue [Unknown]
  - Product dose omission [Unknown]
  - Wrong technique in product usage process [Unknown]
